FAERS Safety Report 7089770-4 (Version None)
Quarter: 2010Q4

REPORT INFORMATION
  Report Type: 
  Country: None (occurrence: None)
  Receive Date: 20101108
  Receipt Date: 20101005
  Transmission Date: 20110411
  Serious: Yes (Hospitalization)
  Sender: FDA-Public Use
  Company Number: US-ABBOTT-10P-163-0675792-00

PATIENT
  Sex: Female
  Weight: 104.42 kg

DRUGS (8)
  1. TRICOR [Suspect]
     Indication: BLOOD TRIGLYCERIDES INCREASED
     Dates: start: 20100301
  2. SIMCOR [Suspect]
     Indication: BLOOD TRIGLYCERIDES INCREASED
     Dosage: 500/20
     Dates: start: 20100301
  3. CITALOPRAM [Concomitant]
     Indication: DEPRESSION
  4. GLIMEPIRIDE [Concomitant]
     Indication: DIABETES MELLITUS
  5. METFORMIN HCL [Concomitant]
     Indication: DIABETES MELLITUS
  6. AMLODIPINE [Concomitant]
     Indication: HYPERTENSION
  7. IMITREX [Concomitant]
     Indication: HEADACHE
     Dosage: PRN
  8. ASPIRIN [Concomitant]
     Indication: PRODUCT USED FOR UNKNOWN INDICATION

REACTIONS (1)
  - PANCREATITIS [None]
